FAERS Safety Report 7875369-6 (Version None)
Quarter: 2011Q4

REPORT INFORMATION
  Report Type: 
  Country: None (occurrence: None)
  Receive Date: 20111031
  Receipt Date: 20111020
  Transmission Date: 20120403
  Serious: Yes (Hospitalization)
  Sender: FDA-Public Use
  Company Number: JP-GLAXOSMITHKLINE-B0744044A

PATIENT
  Sex: Female

DRUGS (5)
  1. WAKOBITAL [Concomitant]
     Indication: EPILEPSY
     Dosage: 120MG PER DAY
     Route: 054
     Dates: start: 20110829
  2. PHENYTOIN SODIUM CAP [Suspect]
     Indication: EPILEPSY
     Route: 065
     Dates: end: 20110829
  3. LAMICTAL [Suspect]
     Indication: EPILEPSY
     Dosage: 25MG PER DAY
     Route: 048
     Dates: start: 20110815, end: 20110825
  4. LAMICTAL [Suspect]
     Dosage: 50MG PER DAY
     Route: 048
     Dates: start: 20110826, end: 20110828
  5. DEPAKENE [Concomitant]
     Indication: EPILEPSY
     Dosage: 900MG PER DAY
     Route: 048

REACTIONS (26)
  - DRUG RASH WITH EOSINOPHILIA AND SYSTEMIC SYMPTOMS [None]
  - ALANINE AMINOTRANSFERASE INCREASED [None]
  - BLOOD CREATINE PHOSPHOKINASE MB INCREASED [None]
  - LYMPHADENOPATHY [None]
  - HEPATIC STEATOSIS [None]
  - BLOOD ALKALINE PHOSPHATASE INCREASED [None]
  - BLOOD AMYLASE INCREASED [None]
  - BILIRUBIN CONJUGATED INCREASED [None]
  - C-REACTIVE PROTEIN INCREASED [None]
  - ALTERED STATE OF CONSCIOUSNESS [None]
  - ASPARTATE AMINOTRANSFERASE INCREASED [None]
  - LIVER DISORDER [None]
  - FIBRIN D DIMER INCREASED [None]
  - NEUTROPHIL PERCENTAGE INCREASED [None]
  - ARTHRALGIA [None]
  - BAND NEUTROPHIL PERCENTAGE INCREASED [None]
  - GAMMA-GLUTAMYLTRANSFERASE INCREASED [None]
  - LYMPHOCYTE PERCENTAGE DECREASED [None]
  - DISSEMINATED INTRAVASCULAR COAGULATION [None]
  - ENCEPHALOPATHY [None]
  - ACTIVATED PARTIAL THROMBOPLASTIN TIME PROLONGED [None]
  - BLOOD LACTATE DEHYDROGENASE INCREASED [None]
  - RASH ERYTHEMATOUS [None]
  - HEPATIC ADENOMA [None]
  - CYTOKINE STORM [None]
  - CSF PROTEIN INCREASED [None]
